FAERS Safety Report 13954236 (Version 3)
Quarter: 2024Q3

REPORT INFORMATION
  Report Type: Spontaneous
  Country: IT (occurrence: IT)
  Receive Date: 20170911
  Receipt Date: 20240708
  Transmission Date: 20241017
  Serious: Yes (Death, Other)
  Sender: FERRING
  Company Number: IT-FERRINGPH-2017FE04277

PATIENT

DRUGS (2)
  1. DESMOPRESSIN [Suspect]
     Active Substance: DESMOPRESSIN
     Indication: Optic ischaemic neuropathy
     Dosage: 2 ?G/0.5 ML
     Route: 056
  2. BETAMETHASONE SODIUM PHOSPHATE [Suspect]
     Active Substance: BETAMETHASONE SODIUM PHOSPHATE
     Indication: Optic ischaemic neuropathy
     Dosage: 2 MG/0.5ML
     Route: 056

REACTIONS (4)
  - Acute myocardial infarction [Fatal]
  - Off label use [Fatal]
  - Product use issue [Fatal]
  - Incorrect route of product administration [Fatal]
